FAERS Safety Report 25121048 (Version 3)
Quarter: 2025Q2

REPORT INFORMATION
  Report Type: Spontaneous
  Country: SA (occurrence: SA)
  Receive Date: 20250326
  Receipt Date: 20250514
  Transmission Date: 20250716
  Serious: Yes (Hospitalization, Other)
  Sender: NOVO NORDISK
  Company Number: SA-NOVOPROD-1394180

PATIENT
  Age: 15 Year
  Sex: Male

DRUGS (9)
  1. NORDITROPIN [Suspect]
     Active Substance: SOMATROPIN
     Indication: Growth hormone deficiency
  2. CEFIXIME [Concomitant]
     Active Substance: CEFIXIME
     Indication: Upper respiratory tract infection
  3. CEFIXIME [Concomitant]
     Active Substance: CEFIXIME
     Indication: Diarrhoea
  4. CEFIXIME [Concomitant]
     Active Substance: CEFIXIME
     Indication: Vomiting
  5. CEFIXIME [Concomitant]
     Active Substance: CEFIXIME
     Indication: Flank pain
  6. METRONIDAZOLE [Concomitant]
     Active Substance: METRONIDAZOLE
     Indication: Diarrhoea
  7. METRONIDAZOLE [Concomitant]
     Active Substance: METRONIDAZOLE
     Indication: Vomiting
  8. METRONIDAZOLE [Concomitant]
     Active Substance: METRONIDAZOLE
     Indication: Flank pain
  9. METRONIDAZOLE [Concomitant]
     Active Substance: METRONIDAZOLE
     Indication: Upper respiratory tract infection

REACTIONS (1)
  - Acute kidney injury [Recovered/Resolved]
